FAERS Safety Report 7965938-7 (Version None)
Quarter: 2011Q4

REPORT INFORMATION
  Report Type: 
  Country: None (occurrence: None)
  Receive Date: 20111208
  Receipt Date: 20111116
  Transmission Date: 20120403
  Serious: Yes (Hospitalization)
  Sender: FDA-Public Use
  Company Number: DE-GLAXOSMITHKLINE-Z0012883A

PATIENT
  Sex: Male
  Weight: 98.6 kg

DRUGS (5)
  1. BISOPROLOL FUMARATE [Concomitant]
  2. AMLODIPINE [Concomitant]
  3. ENALAPRIL MALEATE [Concomitant]
  4. PAZOPANIB [Suspect]
     Indication: RENAL CELL CARCINOMA
     Route: 048
     Dates: start: 20110920
  5. TORSEMIDE [Concomitant]

REACTIONS (1)
  - DEEP VEIN THROMBOSIS [None]
